FAERS Safety Report 9260006 (Version 1)
Quarter: 2013Q2

REPORT INFORMATION
  Report Type: Spontaneous
  Country: AT (occurrence: AT)
  Receive Date: 20130429
  Receipt Date: 20130429
  Transmission Date: 20140414
  Serious: Yes (Other)
  Sender: FDA-Public Use
  Company Number: AT-JNJFOC-20130310436

PATIENT
  Age: 56 Year
  Sex: Male
  Weight: 100 kg

DRUGS (8)
  1. XARELTO [Suspect]
     Indication: EMBOLISM VENOUS
     Route: 048
     Dates: start: 20130219, end: 20130220
  2. XARELTO [Suspect]
     Indication: EMBOLISM VENOUS
     Route: 048
  3. XARELTO [Suspect]
     Indication: DEEP VEIN THROMBOSIS
     Route: 048
  4. XARELTO [Suspect]
     Indication: DEEP VEIN THROMBOSIS
     Route: 048
     Dates: start: 20130219, end: 20130220
  5. LOVENOX [Concomitant]
     Route: 065
     Dates: start: 20130221
  6. LISINOPRIL [Concomitant]
     Indication: HYPERTONIA
     Route: 048
     Dates: start: 2010
  7. CYMBALTA [Concomitant]
     Indication: DEPRESSION
     Route: 048
     Dates: start: 2010
  8. ZOLDEM [Concomitant]
     Indication: SLEEP DISORDER
     Route: 048
     Dates: start: 2010

REACTIONS (3)
  - Haematuria [Recovered/Resolved]
  - Periorbital haematoma [Unknown]
  - Conjunctival disorder [Recovered/Resolved]
